FAERS Safety Report 9149715 (Version 2)
Quarter: 2013Q2

REPORT INFORMATION
  Report Type: Report from Study
  Country: CA (occurrence: CA)
  Receive Date: 20130308
  Receipt Date: 20130410
  Transmission Date: 20140414
  Serious: Yes (Hospitalization)
  Sender: FDA-Public Use
  Company Number: CA-ABBOTT-13P-028-1058505-00

PATIENT
  Sex: Male
  Weight: 50 kg

DRUGS (2)
  1. HUMIRA [Suspect]
     Indication: CROHN^S DISEASE
     Route: 058
     Dates: start: 20110926, end: 201302
  2. HUMIRA [Suspect]
     Route: 058
     Dates: start: 20130219

REACTIONS (14)
  - Weight decreased [Unknown]
  - Anal abscess [Unknown]
  - Crohn^s disease [Unknown]
  - Pyrexia [Unknown]
  - Chills [Unknown]
  - Condition aggravated [Unknown]
  - Decreased appetite [Unknown]
  - Mouth ulceration [Unknown]
  - Flatulence [Unknown]
  - Abdominal pain [Unknown]
  - Frequent bowel movements [Unknown]
  - Diarrhoea [Unknown]
  - Haematochezia [Unknown]
  - Rectal discharge [Unknown]
